FAERS Safety Report 7460325-2 (Version None)
Quarter: 2011Q2

REPORT INFORMATION
  Report Type: 
  Country: None (occurrence: None)
  Receive Date: 20110505
  Receipt Date: 20110427
  Transmission Date: 20111010
  Serious: Yes (Hospitalization, Disabling)
  Sender: FDA-Public Use
  Company Number: A0889248A

PATIENT
  Age: 54 Year
  Sex: Female

DRUGS (2)
  1. ROSIGLITAZONE [Suspect]
     Indication: DIABETES MELLITUS
     Route: 048
  2. AVANDIA [Suspect]
     Route: 065
     Dates: start: 20010606, end: 20070726

REACTIONS (10)
  - ARRHYTHMIA [None]
  - HEART RATE DECREASED [None]
  - CARDIAC FAILURE CONGESTIVE [None]
  - ANGINA UNSTABLE [None]
  - CORONARY ARTERY DISEASE [None]
  - CEREBROVASCULAR INSUFFICIENCY [None]
  - ARTERIOSCLEROSIS CORONARY ARTERY [None]
  - PALPITATIONS [None]
  - TRANSIENT ISCHAEMIC ATTACK [None]
  - CARDIOMYOPATHY [None]
